FAERS Safety Report 20047446 (Version 1)
Quarter: 2021Q4

REPORT INFORMATION
  Report Type: Report from Study
  Country: US (occurrence: US)
  Receive Date: 20211109
  Receipt Date: 20211109
  Transmission Date: 20220303
  Serious: Yes (Hospitalization, Other)
  Sender: FDA-Public Use
  Company Number: US-GILEAD-2021-0551447

PATIENT
  Age: 29 Year
  Sex: Female

DRUGS (18)
  1. AZTREONAM LYSINE [Suspect]
     Active Substance: AZTREONAM LYSINE
     Indication: Cystic fibrosis
     Dosage: 75 MG,  TID 28 DAYS ON AND 28 DAYS OFF
     Route: 055
     Dates: start: 201109
  2. AZTREONAM LYSINE [Suspect]
     Active Substance: AZTREONAM LYSINE
     Indication: Bacterial disease carrier
  3. VALCYTE [Concomitant]
     Active Substance: VALGANCICLOVIR HYDROCHLORIDE
  4. CREON [Concomitant]
     Active Substance: PANCRELIPASE AMYLASE\PANCRELIPASE LIPASE\PANCRELIPASE PROTEASE
  5. CARVEDILOL [Concomitant]
     Active Substance: CARVEDILOL
  6. METHYLPREDNISOLONE [Concomitant]
     Active Substance: METHYLPREDNISOLONE
  7. LAMOTRIGINE [Concomitant]
     Active Substance: LAMOTRIGINE
  8. METOPROLOL [Concomitant]
     Active Substance: METOPROLOL
  9. PROGRAF [Concomitant]
     Active Substance: TACROLIMUS
  10. ALBUTEROL SULFATE [Concomitant]
     Active Substance: ALBUTEROL SULFATE
  11. AZITHROMYCIN [Concomitant]
     Active Substance: AZITHROMYCIN
  12. LOSARTAN [Concomitant]
     Active Substance: LOSARTAN
  13. PREDNISONE [Concomitant]
     Active Substance: PREDNISONE
  14. VITAMIN D NOS [Concomitant]
     Active Substance: VITAMIN D NOS
  15. ABILIFY [Concomitant]
     Active Substance: ARIPIPRAZOLE
  16. FAMOTIDINE [Concomitant]
     Active Substance: FAMOTIDINE
  17. OMEPRAZOLE [Concomitant]
     Active Substance: OMEPRAZOLE
  18. VITAMIN D3 [Concomitant]
     Active Substance: CHOLECALCIFEROL

REACTIONS (5)
  - Lung transplant rejection [Unknown]
  - Lung transplant [Unknown]
  - Nasal congestion [Unknown]
  - Cough [Unknown]
  - Chest discomfort [Unknown]

NARRATIVE: CASE EVENT DATE: 20210926
